FAERS Safety Report 20037411 (Version 8)
Quarter: 2022Q4

REPORT INFORMATION
  Report Type: Report from Study
  Country: DO (occurrence: DO)
  Receive Date: 20211105
  Receipt Date: 20221007
  Transmission Date: 20230113
  Serious: Yes (Death, Hospitalization, Other)
  Sender: FDA-Public Use
  Company Number: DO-NOVARTISPH-NVSC2021DO086333

PATIENT
  Age: 56 Year
  Sex: Female

DRUGS (8)
  1. KISQALI [Suspect]
     Active Substance: RIBOCICLIB
     Indication: Breast cancer
     Dosage: 600 MG, QD
     Route: 048
     Dates: start: 202102
  2. KISQALI [Suspect]
     Active Substance: RIBOCICLIB
     Dosage: 600 MG, QD
     Route: 048
     Dates: start: 20210301
  3. KISQALI [Suspect]
     Active Substance: RIBOCICLIB
     Dosage: 600 MG, QD
     Route: 048
     Dates: start: 20210310, end: 202208
  4. KISQALI [Suspect]
     Active Substance: RIBOCICLIB
     Dosage: 600 MG, QD
     Route: 048
     Dates: start: 20210315, end: 20210410
  5. KISQALI [Suspect]
     Active Substance: RIBOCICLIB
     Dosage: 600 MG, QD
     Route: 048
  6. DRAMIDOM [Concomitant]
     Indication: Product used for unknown indication
     Dosage: UNK
     Route: 065
  7. MORPHINE [Concomitant]
     Active Substance: MORPHINE
     Indication: Product used for unknown indication
     Dosage: UNK
     Route: 065
  8. RANITIDINE [Concomitant]
     Active Substance: RANITIDINE
     Indication: Product used for unknown indication
     Dosage: UNK
     Route: 065

REACTIONS (26)
  - Death [Fatal]
  - Malnutrition [Unknown]
  - Vomiting [Unknown]
  - Asphyxia [Unknown]
  - Cardiac failure [Unknown]
  - Neoplasm [Unknown]
  - Malignant neoplasm progression [Unknown]
  - Syncope [Unknown]
  - Amnesia [Unknown]
  - Yellow skin [Unknown]
  - Breast cancer [Unknown]
  - Metastases to liver [Unknown]
  - Depressed mood [Unknown]
  - Pain [Unknown]
  - Memory impairment [Unknown]
  - Discomfort [Unknown]
  - Peripheral swelling [Unknown]
  - Pulmonary pain [Unknown]
  - Feeling abnormal [Unknown]
  - Fall [Unknown]
  - Arthralgia [Unknown]
  - Coccydynia [Unknown]
  - Gait disturbance [Unknown]
  - Skeletal injury [Unknown]
  - Depression [Unknown]
  - Nausea [Unknown]

NARRATIVE: CASE EVENT DATE: 20210410
